FAERS Safety Report 8249763-8 (Version None)
Quarter: 2012Q2

REPORT INFORMATION
  Report Type: 
  Country: None (occurrence: None)
  Receive Date: 20120402
  Receipt Date: 20120323
  Transmission Date: 20120825
  Serious: Yes (Other)
  Sender: FDA-Public Use
  Company Number: PHHY2012ES025342

PATIENT
  Age: 47 Year
  Sex: Male

DRUGS (9)
  1. ATAZANAVIR [Concomitant]
  2. RASILEZ [Suspect]
     Indication: HYPERTENSION
     Dosage: 300 MG, UNK
     Route: 048
     Dates: start: 20110701, end: 20120110
  3. FRENADOL [Concomitant]
     Indication: MALAISE
     Dosage: UNK
     Route: 048
     Dates: start: 20111227, end: 20111230
  4. CARDURA [Concomitant]
  5. ABACAVIR SULFATE/LAMIVUDINE [Concomitant]
  6. DICLOFENAC SODIUM [Interacting]
     Dosage: UNK
     Route: 048
     Dates: start: 20111222, end: 20120102
  7. VOLTAREN [Interacting]
     Dosage: UNK
     Route: 061
     Dates: start: 20111205, end: 20111220
  8. IBUPROFEN [Interacting]
     Dosage: UNK
     Route: 048
     Dates: start: 20111203, end: 20111210
  9. ASPIRIN [Concomitant]

REACTIONS (7)
  - DRUG INTERACTION [None]
  - HYPERTENSION [None]
  - RENAL FAILURE [None]
  - ACUTE PULMONARY OEDEMA [None]
  - VENTRICULAR HYPOKINESIA [None]
  - EJECTION FRACTION DECREASED [None]
  - CARDIOMEGALY [None]
